FAERS Safety Report 7585892-X (Version None)
Quarter: 2011Q3

REPORT INFORMATION
  Report Type: 
  Country: None (occurrence: None)
  Receive Date: 20110701
  Receipt Date: 20110628
  Transmission Date: 20111222
  Serious: Yes (Other)
  Sender: FDA-Public Use
  Company Number: US-SANOFI-AVENTIS-2011SA041416

PATIENT
  Sex: Male

DRUGS (1)
  1. AMBIEN CR [Suspect]
     Route: 048

REACTIONS (4)
  - LEGAL PROBLEM [None]
  - AMNESIA [None]
  - ABNORMAL BEHAVIOUR [None]
  - SOMNAMBULISM [None]
